FAERS Safety Report 5803041-2 (Version None)
Quarter: 2008Q3

REPORT INFORMATION
  Report Type: 
  Country: None (occurrence: None)
  Receive Date: 20080708
  Receipt Date: 20080627
  Transmission Date: 20090109
  Serious: Yes (Hospitalization)
  Sender: FDA-Public Use
  Company Number: US-JNJFOC-20080606845

PATIENT
  Sex: Male
  Weight: 91.63 kg

DRUGS (5)
  1. DURAGESIC-100 [Suspect]
     Route: 062
  2. DURAGESIC-100 [Suspect]
     Dosage: 2X100UG/HR
     Route: 062
  3. DURAGESIC-100 [Suspect]
     Indication: PAIN
     Dosage: 2 X 100 UG/HR PATCHES
     Route: 062
  4. DIOVAN [Concomitant]
     Indication: CARDIAC DISORDER
     Route: 048
  5. LASIX [Concomitant]
     Indication: CARDIAC DISORDER
     Route: 048

REACTIONS (3)
  - CARDIAC FAILURE CONGESTIVE [None]
  - PNEUMONIA [None]
  - PSYCHOTIC DISORDER [None]
